FAERS Safety Report 16900068 (Version 1)
Quarter: 2019Q4

REPORT INFORMATION
  Report Type: Spontaneous
  Country: CA (occurrence: CA)
  Receive Date: 20191009
  Receipt Date: 20191009
  Transmission Date: 20200122
  Serious: Yes (Death, Hospitalization, Other)
  Sender: FDA-Public Use
  Company Number: CA-BAYER-2010-004848

PATIENT
  Age: 14 Year
  Sex: Female

DRUGS (4)
  1. GARDASIL [Suspect]
     Active Substance: HUMAN PAPILLOMAVIRUS QUADRIVALENT (TYPES 6, 11, 16, AND 18) VACCINE, RECOMBINANT
     Indication: IMMUNISATION
     Dosage: UNK
     Dates: start: 20081124, end: 20081124
  2. YASMIN [Suspect]
     Active Substance: DROSPIRENONE\ETHINYL ESTRADIOL
     Dosage: UNK
     Dates: start: 2008
  3. GARDASIL [Suspect]
     Active Substance: HUMAN PAPILLOMAVIRUS QUADRIVALENT (TYPES 6, 11, 16, AND 18) VACCINE, RECOMBINANT
     Indication: IMMUNISATION
     Dosage: UNK
     Route: 058
     Dates: start: 20081009, end: 20081009
  4. INFLUENZA VACCINE [Concomitant]
     Active Substance: INFLUENZA VIRUS VACCINE
     Indication: IMMUNISATION
     Dosage: UNK UNK, ONCE
     Route: 058
     Dates: start: 200811, end: 200811

REACTIONS (13)
  - Syncope [Recovered/Resolved]
  - Blood glucose increased [Recovered/Resolved]
  - Vomiting [Recovered/Resolved]
  - Dizziness postural [Recovered/Resolved]
  - Drowning [None]
  - Confusional state [Recovered/Resolved]
  - Asthenia [Recovered/Resolved]
  - Cardiac arrest [Fatal]
  - Gait inability [Recovered/Resolved]
  - Basilar migraine [Recovered/Resolved]
  - Crying [Recovered/Resolved]
  - Loss of consciousness [Recovered/Resolved]
  - Headache [Recovered/Resolved]

NARRATIVE: CASE EVENT DATE: 20081025
